FAERS Safety Report 4539260-5 (Version None)
Quarter: 2004Q4

REPORT INFORMATION
  Report Type: 
  Country: None (occurrence: None)
  Receive Date: 20041228
  Receipt Date: 20041217
  Transmission Date: 20050328
  Serious: Yes (Other)
  Sender: FDA-Public Use
  Company Number: SE-JNJFOC-20041205677

PATIENT
  Sex: Female

DRUGS (2)
  1. REMICADE [Suspect]
     Indication: CROHN'S DISEASE
     Dosage: INFUSIONS ADMINISTERED WEEKS 0, 2, 6 AND THEN EVERY 8 WEEKS.
     Route: 042
  2. AZATHIOPRINE [Concomitant]
     Route: 065

REACTIONS (1)
  - VISUAL ACUITY REDUCED [None]
